FAERS Safety Report 17910905 (Version 5)
Quarter: 2025Q1

REPORT INFORMATION
  Report Type: Report from Study
  Country: US (occurrence: US)
  Receive Date: 20200618
  Receipt Date: 20250310
  Transmission Date: 20250408
  Serious: Yes (Other)
  Sender: TAKEDA
  Company Number: US-SHIRE-US202019759

PATIENT
  Sex: Female
  Weight: 77 kg

DRUGS (30)
  1. HUMAN IMMUNOGLOBULIN G\HYALURONIDASE RECOMBINANT HUMAN [Suspect]
     Active Substance: HUMAN IMMUNOGLOBULIN G\HYALURONIDASE (HUMAN RECOMBINANT)
     Indication: Immunodeficiency common variable
     Dosage: 32.5 GRAM, Q4WEEKS
     Dates: start: 20171226
  2. HUMAN IMMUNOGLOBULIN G\HYALURONIDASE RECOMBINANT HUMAN [Suspect]
     Active Substance: HUMAN IMMUNOGLOBULIN G\HYALURONIDASE (HUMAN RECOMBINANT)
     Dosage: 32.5 GRAM, Q4WEEKS
     Dates: start: 20180101
  3. HUMAN IMMUNOGLOBULIN G\HYALURONIDASE RECOMBINANT HUMAN [Suspect]
     Active Substance: HUMAN IMMUNOGLOBULIN G\HYALURONIDASE (HUMAN RECOMBINANT)
     Dosage: 32.5 GRAM, Q4WEEKS
  4. HUMAN IMMUNOGLOBULIN G\HYALURONIDASE RECOMBINANT HUMAN [Suspect]
     Active Substance: HUMAN IMMUNOGLOBULIN G\HYALURONIDASE (HUMAN RECOMBINANT)
     Dosage: 32.5 GRAM, Q4WEEKS
  5. SODIUM CHLORIDE [Concomitant]
     Active Substance: SODIUM CHLORIDE
  6. ACETAMINOPHEN [Concomitant]
     Active Substance: ACETAMINOPHEN
  7. CRESTOR [Concomitant]
     Active Substance: ROSUVASTATIN CALCIUM
  8. MELOXICAM [Concomitant]
     Active Substance: MELOXICAM
  9. Caltrate + d plus [Concomitant]
  10. MINERALS\VITAMINS [Concomitant]
     Active Substance: MINERALS\VITAMINS
  11. LEXAPRO [Concomitant]
     Active Substance: ESCITALOPRAM OXALATE
  12. LIDOCAINE [Concomitant]
     Active Substance: LIDOCAINE
  13. BENADRYL [Concomitant]
     Active Substance: DIPHENHYDRAMINE HYDROCHLORIDE
  14. ALPRAZOLAM [Concomitant]
     Active Substance: ALPRAZOLAM
  15. DIPHENHYDRAMINE HYDROCHLORIDE [Concomitant]
     Active Substance: DIPHENHYDRAMINE HYDROCHLORIDE
  16. PRILOSEC [Concomitant]
     Active Substance: OMEPRAZOLE MAGNESIUM
  17. DIPHENHYDRAMINE [Concomitant]
     Active Substance: DIPHENHYDRAMINE
  18. EPINEPHRINE [Concomitant]
     Active Substance: EPINEPHRINE
  19. ASPIRIN [Concomitant]
     Active Substance: ASPIRIN
  20. VITAMIN D3 [Concomitant]
     Active Substance: CHOLECALCIFEROL
  21. AMBIEN [Concomitant]
     Active Substance: ZOLPIDEM TARTRATE
  22. CETIRIZINE HCL [Concomitant]
     Active Substance: CETIRIZINE HYDROCHLORIDE
  23. EPIPEN [Concomitant]
     Active Substance: EPINEPHRINE
  24. TRAMADOL HCL [Concomitant]
     Active Substance: TRAMADOL HYDROCHLORIDE
  25. VITAMIN C [Concomitant]
     Active Substance: ASCORBIC ACID
  26. CEPHALEXIN [Concomitant]
     Active Substance: CEPHALEXIN
  27. ZYRTEC [Concomitant]
     Active Substance: CETIRIZINE HYDROCHLORIDE
  28. METOPROLOL SUCCINATE [Concomitant]
     Active Substance: METOPROLOL SUCCINATE
  29. FLECAINIDE ACETATE [Concomitant]
     Active Substance: FLECAINIDE ACETATE
  30. OXYGEN [Concomitant]
     Active Substance: OXYGEN

REACTIONS (20)
  - Atrial fibrillation [Unknown]
  - Limb injury [Recovering/Resolving]
  - Urinary tract infection [Unknown]
  - Sinusitis [Recovered/Resolved]
  - Seasonal allergy [Unknown]
  - Multiple allergies [Unknown]
  - Dacryocanaliculitis [Unknown]
  - Infection [Unknown]
  - COVID-19 [Unknown]
  - Post-acute COVID-19 syndrome [Unknown]
  - Drug hypersensitivity [Unknown]
  - Dermatitis contact [Unknown]
  - Infusion site discharge [Unknown]
  - Product taste abnormal [Unknown]
  - Inappropriate schedule of product administration [Unknown]
  - Abdominal discomfort [Unknown]
  - Oropharyngeal pain [Unknown]
  - Blood pressure increased [Unknown]
  - Infusion site pain [Unknown]
  - Infusion site swelling [Unknown]
